FAERS Safety Report 4477655-9 (Version None)
Quarter: 2004Q4

REPORT INFORMATION
  Report Type: 
  Country: None (occurrence: None)
  Receive Date: 20041014
  Receipt Date: 20040929
  Transmission Date: 20050328
  Serious: Yes (Hospitalization)
  Sender: FDA-Public Use
  Company Number: ATO-04-0850

PATIENT
  Age: 44 Year
  Sex: Female
  Weight: 45.3597 kg

DRUGS (2)
  1. TRISENOX [Suspect]
     Indication: MULTIPLE MYELOMA
     Dosage: 0.25 MG/KG (0.25 MG/KG, 5 DOSE LOAD: 2X/WK), IVI
     Route: 042
     Dates: start: 20040917, end: 20040921
  2. ASCORBIC ACID [Suspect]
     Indication: MULTIPLE MYELOMA

REACTIONS (6)
  - AMMONIA INCREASED [None]
  - CONFUSIONAL STATE [None]
  - HAEMATEMESIS [None]
  - HEPATIC ENZYME INCREASED [None]
  - HEPATOTOXICITY [None]
  - NAUSEA [None]
